FAERS Safety Report 17686939 (Version 3)
Quarter: 2020Q4

REPORT INFORMATION
  Report Type: Spontaneous
  Country: US (occurrence: US)
  Receive Date: 20200421
  Receipt Date: 20201201
  Transmission Date: 20210113
  Serious: Yes (Hospitalization, Other)
  Sender: FDA-Public Use
  Company Number: US-ASTRAZENECA-2018SF65772

PATIENT
  Age: 829 Month
  Sex: Female
  Weight: 80 kg

DRUGS (56)
  1. DIFLUCAN [Concomitant]
     Active Substance: FLUCONAZOLE
  2. BACTRIM [Concomitant]
     Active Substance: SULFAMETHOXAZOLE\TRIMETHOPRIM
  3. DEXTROSE. [Concomitant]
     Active Substance: DEXTROSE
  4. GABAPENTIN. [Concomitant]
     Active Substance: GABAPENTIN
  5. NITROGLYCERIN. [Concomitant]
     Active Substance: NITROGLYCERIN
  6. BETAMETHASONE VALERATE. [Concomitant]
     Active Substance: BETAMETHASONE VALERATE
  7. PIOGLITAZONE. [Concomitant]
     Active Substance: PIOGLITAZONE
  8. RANEXA [Concomitant]
     Active Substance: RANOLAZINE
  9. NEXIUM 24HR [Suspect]
     Active Substance: ESOMEPRAZOLE MAGNESIUM
     Dosage: FOR VARIOUS DATES AND YEARS
     Route: 048
  10. PRILOSEC OTC [Suspect]
     Active Substance: OMEPRAZOLE MAGNESIUM
     Dosage: FOR VARIOUS DATES AND YEARS
     Route: 048
  11. GLIMEPIRIDE. [Concomitant]
     Active Substance: GLIMEPIRIDE
  12. METFORMIN [Concomitant]
     Active Substance: METFORMIN HYDROCHLORIDE
  13. ROLLATOR [Concomitant]
  14. MACROBID [Concomitant]
     Active Substance: NITROFURANTOIN\NITROFURANTOIN MONOHYDRATE
  15. AMOXICILLIN- POTASSIUM CLAVULANATE [Concomitant]
  16. GLUCAGON. [Concomitant]
     Active Substance: GLUCAGON
  17. ALBUTEROL. [Concomitant]
     Active Substance: ALBUTEROL
  18. PRAVASTATIN. [Concomitant]
     Active Substance: PRAVASTATIN
  19. LASIX [Concomitant]
     Active Substance: FUROSEMIDE
  20. FLONASE [Concomitant]
     Active Substance: FLUTICASONE PROPIONATE
  21. BUSPIRONE HCL [Concomitant]
     Active Substance: BUSPIRONE HYDROCHLORIDE
  22. IVERMECTIN. [Concomitant]
     Active Substance: IVERMECTIN
  23. ATENOLOL. [Concomitant]
     Active Substance: ATENOLOL
  24. REQUIP [Concomitant]
     Active Substance: ROPINIROLE HYDROCHLORIDE
  25. KEFLEX [Concomitant]
     Active Substance: CEPHALEXIN
  26. SYNTHROID [Concomitant]
     Active Substance: LEVOTHYROXINE SODIUM
  27. HYDROCHLOROTHIAZIDE. [Concomitant]
     Active Substance: HYDROCHLOROTHIAZIDE
  28. PLAVIX [Concomitant]
     Active Substance: CLOPIDOGREL BISULFATE
  29. LIDOCAINE. [Concomitant]
     Active Substance: LIDOCAINE
  30. FENTANYL CITRATE. [Concomitant]
     Active Substance: FENTANYL CITRATE
  31. SODIUM CHLORIDE. [Concomitant]
     Active Substance: SODIUM CHLORIDE
  32. PREVACID 24 HR [Suspect]
     Active Substance: LANSOPRAZOLE
     Dosage: FOR VARIOUS DATES AND YEARS
     Route: 065
  33. BUSPIRONE [Concomitant]
     Active Substance: BUSPIRONE HYDROCHLORIDE
  34. VITAMIN D3 [Concomitant]
     Active Substance: CHOLECALCIFEROL
  35. MULTIVITAMIN [Concomitant]
     Active Substance: VITAMINS
  36. TESSALON [Concomitant]
     Active Substance: BENZONATATE
  37. HEPARIN [Concomitant]
     Active Substance: HEPARIN SODIUM
  38. IRON [Concomitant]
     Active Substance: IRON
  39. ONDANSETRON [Concomitant]
     Active Substance: ONDANSETRON
  40. TRIMETH/SULFA [Concomitant]
  41. FLUOXETINE [Concomitant]
     Active Substance: FLUOXETINE HYDROCHLORIDE
  42. LEVOTHYROXINE. [Concomitant]
     Active Substance: LEVOTHYROXINE
  43. TIZANIDINE. [Concomitant]
     Active Substance: TIZANIDINE
  44. LANTUS SOLOSTAR [Concomitant]
     Active Substance: INSULIN GLARGINE
  45. METOPROLOL TARTRATE. [Concomitant]
     Active Substance: METOPROLOL TARTRATE
  46. METFORMIN HCL [Concomitant]
     Active Substance: METFORMIN HYDROCHLORIDE
  47. TRIAMCINOLONE ACETONIDE. [Concomitant]
     Active Substance: TRIAMCINOLONE ACETONIDE
  48. BENADRYL [Concomitant]
     Active Substance: DIPHENHYDRAMINE HYDROCHLORIDE
  49. MELATONIN [Concomitant]
     Active Substance: MELATONIN
  50. NEXIUM [Suspect]
     Active Substance: ESOMEPRAZOLE MAGNESIUM
     Route: 048
  51. TRADJENTA [Concomitant]
     Active Substance: LINAGLIPTIN
  52. LISINOPRIL. [Concomitant]
     Active Substance: LISINOPRIL
  53. PRAVASTATIN SODIUM. [Concomitant]
     Active Substance: PRAVASTATIN SODIUM
  54. TIZANIDINE HCL [Concomitant]
     Active Substance: TIZANIDINE HYDROCHLORIDE
  55. POTASSIUM CHLORIDE. [Concomitant]
     Active Substance: POTASSIUM CHLORIDE
  56. ERTAPENEM. [Concomitant]
     Active Substance: ERTAPENEM SODIUM

REACTIONS (5)
  - Acute kidney injury [Not Recovered/Not Resolved]
  - Renal failure [Unknown]
  - Chronic kidney disease [Not Recovered/Not Resolved]
  - Renal injury [Unknown]
  - Rebound acid hypersecretion [Unknown]

NARRATIVE: CASE EVENT DATE: 201606
